FAERS Safety Report 5076722-9 (Version None)
Quarter: 2006Q3

REPORT INFORMATION
  Report Type: 
  Country: None (occurrence: None)
  Receive Date: 20060725
  Receipt Date: 20060424
  Transmission Date: 20061208
  Serious: Yes (Disabling)
  Sender: FDA-Public Use
  Company Number: 200612362BWH

PATIENT
  Age: 59 Year
  Sex: Male

DRUGS (18)
  1. NEXAVAR [Suspect]
     Indication: RENAL CELL CARCINOMA STAGE UNSPECIFIED
     Dosage: SEE IMAGE
     Route: 048
     Dates: start: 20060209, end: 20060216
  2. NEXAVAR [Suspect]
     Indication: RENAL CELL CARCINOMA STAGE UNSPECIFIED
     Dosage: SEE IMAGE
     Route: 048
     Dates: start: 20060222, end: 20060319
  3. NEXAVAR [Suspect]
     Indication: RENAL CELL CARCINOMA STAGE UNSPECIFIED
     Dosage: SEE IMAGE
     Route: 048
     Dates: start: 20060403, end: 20060410
  4. NEXAVAR [Suspect]
     Indication: RENAL CELL CARCINOMA STAGE UNSPECIFIED
     Dosage: SEE IMAGE
     Route: 048
     Dates: start: 20060418
  5. CHROMAGEN [ASCORBIC ACID,CYANOCOBALAMIN,FERROUS FUMARATE,STOMACH DISCO [Concomitant]
  6. LIPITOR [Concomitant]
  7. FOLIC ACID [Concomitant]
  8. ALLOPURINOL [Concomitant]
  9. COREG [Concomitant]
  10. GLUCOPHAGE [Concomitant]
  11. MONOPRIL [Concomitant]
  12. GLUCOTROL [Concomitant]
  13. ZOLOFT [Concomitant]
  14. AVANDIA [Concomitant]
  15. CLARINEX [Concomitant]
  16. PREVACID [Concomitant]
  17. SPIRIVA [Concomitant]
  18. ALBUTEROL [Concomitant]

REACTIONS (4)
  - ABASIA [None]
  - BLISTER [None]
  - FATIGUE [None]
  - NAUSEA [None]
